FAERS Safety Report 13566454 (Version 4)
Quarter: 2018Q3

REPORT INFORMATION
  Report Type: Report from Study
  Country: US (occurrence: US)
  Receive Date: 20170522
  Receipt Date: 20180723
  Transmission Date: 20181010
  Serious: Yes (Hospitalization, Other)
  Sender: FDA-Public Use
  Company Number: PHHY2017US074483

PATIENT
  Age: 28 Year
  Sex: Female
  Weight: 53.3 kg

DRUGS (39)
  1. ALBUTEROL. [Concomitant]
     Active Substance: ALBUTEROL
     Dosage: 2 DF (2 PUFF), PRN
     Route: 055
     Dates: start: 20170501
  2. AZITHROMYCIN ANHYDROUS. [Concomitant]
     Active Substance: AZITHROMYCIN ANHYDROUS
     Indication: CYSTIC FIBROSIS
     Dosage: UNK
     Route: 065
     Dates: start: 20120101
  3. AZITHROMYCIN ANHYDROUS. [Concomitant]
     Active Substance: AZITHROMYCIN ANHYDROUS
     Dosage: 500 MG, EVERY 3 WEEKS
     Route: 048
     Dates: start: 20170428
  4. CREON [Concomitant]
     Active Substance: PANCRELIPASE AMYLASE\PANCRELIPASE LIPASE\PANCRELIPASE PROTEASE
     Dosage: UNK UNK, PRN (5?6 CAPSULES AFTER MEALS)
     Route: 065
     Dates: start: 20171017
  5. BENADRYL [Concomitant]
     Active Substance: DIPHENHYDRAMINE HYDROCHLORIDE
     Dosage: UNK
     Route: 065
     Dates: start: 20180220, end: 20180221
  6. ACETAMINOPHEN. [Concomitant]
     Active Substance: ACETAMINOPHEN
     Indication: PAIN
     Dosage: UNK
     Route: 065
     Dates: start: 20180221, end: 20180227
  7. TOBI PODHALER [Suspect]
     Active Substance: TOBRAMYCIN
     Indication: CYSTIC FIBROSIS
     Dosage: 300 MG, UNK
     Route: 055
     Dates: start: 2011, end: 20170501
  8. LANTUS [Concomitant]
     Active Substance: INSULIN GLARGINE
     Dosage: 1 DF, QD
     Route: 058
     Dates: start: 20171016
  9. MINOCYCLINE [Concomitant]
     Active Substance: MINOCYCLINE\MINOCYCLINE HYDROCHLORIDE
     Indication: CYSTIC FIBROSIS
     Dosage: 2 DF (100 MG), QD
     Route: 048
     Dates: start: 20160101, end: 20170424
  10. LANTUS [Concomitant]
     Active Substance: INSULIN GLARGINE
     Dosage: 12 UG, QD
     Route: 058
  11. LANTUS [Concomitant]
     Active Substance: INSULIN GLARGINE
     Dosage: 12 UG, QD
     Route: 058
     Dates: start: 20170501
  12. BENADRYL [Concomitant]
     Active Substance: DIPHENHYDRAMINE HYDROCHLORIDE
     Indication: PRURITUS
     Dosage: UNK
     Route: 065
     Dates: start: 20170513, end: 20170516
  13. ADVAIR HFA [Concomitant]
     Active Substance: FLUTICASONE PROPIONATE\SALMETEROL XINAFOATE
     Indication: CYSTIC FIBROSIS
     Dosage: 2 DF (2 PUFFS), QD
     Route: 055
     Dates: start: 20161219
  14. ALBUTEROL. [Concomitant]
     Active Substance: ALBUTEROL
     Indication: CYSTIC FIBROSIS
     Dosage: 2 DF (2 PUFF), PRN
     Route: 055
     Dates: start: 20130101
  15. AZITHROMYCIN ANHYDROUS. [Concomitant]
     Active Substance: AZITHROMYCIN ANHYDROUS
     Dosage: 500 MG, EVERY 3 WEEKS
     Route: 048
     Dates: start: 20171015
  16. ADEK [Concomitant]
     Indication: VITAMIN SUPPLEMENTATION
     Dosage: 1 DF, QD
     Route: 048
     Dates: start: 20120101
  17. BENADRYL [Concomitant]
     Active Substance: DIPHENHYDRAMINE HYDROCHLORIDE
     Dosage: UNK
     Route: 065
     Dates: start: 20171018, end: 20171023
  18. ORKAMBI [Concomitant]
     Active Substance: IVACAFTOR\LUMACAFTOR
     Indication: CYSTIC FIBROSIS
     Dosage: UNK
     Route: 065
     Dates: start: 20151130, end: 20170125
  19. TOBI PODHALER [Suspect]
     Active Substance: TOBRAMYCIN
     Indication: PSEUDOMONAS INFECTION
     Dosage: UNK
     Route: 065
     Dates: start: 20170501, end: 20170511
  20. TOBI PODHALER [Suspect]
     Active Substance: TOBRAMYCIN
     Dosage: 75 MG, BID
     Route: 055
     Dates: start: 20171016
  21. MINOCYCLINE [Concomitant]
     Active Substance: MINOCYCLINE\MINOCYCLINE HYDROCHLORIDE
     Indication: BACTERIAL INFECTION
  22. PULMOZYME [Concomitant]
     Active Substance: DORNASE ALFA
     Dosage: 2.5 ML, BID
     Route: 065
     Dates: start: 20171017
  23. CREON [Concomitant]
     Active Substance: PANCRELIPASE AMYLASE\PANCRELIPASE LIPASE\PANCRELIPASE PROTEASE
     Indication: PANCREATIC FAILURE
     Dosage: UNK UNK, PRN (5?6 CAPSULES AFTER MEALS)
     Route: 065
     Dates: start: 2012
  24. PREDNISONE. [Concomitant]
     Active Substance: PREDNISONE
     Indication: RASH
     Dosage: UNK
     Route: 065
     Dates: start: 20170407, end: 20170411
  25. PEPCID [Concomitant]
     Active Substance: FAMOTIDINE
     Indication: PRODUCT USED FOR UNKNOWN INDICATION
     Dosage: UNK
     Route: 065
     Dates: start: 20180221, end: 20180227
  26. BENADRYL [Concomitant]
     Active Substance: DIPHENHYDRAMINE HYDROCHLORIDE
     Indication: HEADACHE
     Dosage: UNK
     Route: 065
     Dates: start: 20171018, end: 20171018
  27. TEZACAFTOR [Concomitant]
     Active Substance: TEZACAFTOR
     Indication: CYSTIC FIBROSIS
     Dosage: UNK
     Route: 065
     Dates: start: 20180227
  28. LOVENOX [Concomitant]
     Active Substance: ENOXAPARIN SODIUM
     Indication: DEEP VEIN THROMBOSIS
     Dosage: UNK
     Route: 065
     Dates: start: 20170511, end: 20170516
  29. ZOFRAN [Concomitant]
     Active Substance: ONDANSETRON HYDROCHLORIDE
     Indication: NAUSEA
     Dosage: UNK
     Route: 065
     Dates: start: 20180221, end: 20180227
  30. ADVAIR HFA [Concomitant]
     Active Substance: FLUTICASONE PROPIONATE\SALMETEROL XINAFOATE
     Dosage: 2 DF (2 PUFFS), BID
     Route: 055
     Dates: start: 20171017
  31. PULMOZYME [Concomitant]
     Active Substance: DORNASE ALFA
     Indication: CYSTIC FIBROSIS
     Dosage: 2 DF (2.5 ML), QD
     Route: 055
     Dates: start: 20120101
  32. PANGESTYME [Concomitant]
     Indication: PANCREATIC FAILURE
     Dosage: 5?6 CAP, PRN
     Route: 048
     Dates: end: 20120101
  33. PANGESTYME [Concomitant]
     Dosage: 5?6 CAP, PRN
     Route: 048
     Dates: start: 20170501
  34. ADEK [Concomitant]
     Dosage: 1 DF, QD
     Route: 048
     Dates: start: 20170501
  35. LANTUS [Concomitant]
     Active Substance: INSULIN GLARGINE
     Indication: DIABETES MELLITUS
     Dosage: UNK
     Route: 065
     Dates: start: 20130101
  36. ADVAIR HFA [Concomitant]
     Active Substance: FLUTICASONE PROPIONATE\SALMETEROL XINAFOATE
     Dosage: 2 DF (2 PUFFS), QD
     Route: 055
     Dates: start: 20170501
  37. PULMOZYME [Concomitant]
     Active Substance: DORNASE ALFA
     Dosage: 2 DF (2.5 ML), QD
     Route: 055
     Dates: start: 20170501
  38. AZITHROMYCIN ANHYDROUS. [Concomitant]
     Active Substance: AZITHROMYCIN ANHYDROUS
     Indication: INFECTION
     Dosage: 500 MG, EVERY 3 WEEKS
     Route: 048
  39. VITAMIN D3 [Concomitant]
     Active Substance: CHOLECALCIFEROL
     Indication: VITAMIN D DEFICIENCY
     Dosage: 50000 U, QW
     Route: 065
     Dates: start: 2016

REACTIONS (9)
  - Fatigue [Unknown]
  - Dyspnoea [Unknown]
  - Cough [Unknown]
  - Infective pulmonary exacerbation of cystic fibrosis [Recovered/Resolved]
  - Wheezing [Unknown]
  - Productive cough [Unknown]
  - Infective pulmonary exacerbation of cystic fibrosis [Recovered/Resolved]
  - Infective pulmonary exacerbation of cystic fibrosis [Recovered/Resolved]
  - Weight decreased [Unknown]

NARRATIVE: CASE EVENT DATE: 20170501
